FAERS Safety Report 7873259-6 (Version None)
Quarter: 2011Q4

REPORT INFORMATION
  Report Type: 
  Country: None (occurrence: None)
  Receive Date: 20111003
  Receipt Date: 20100825
  Transmission Date: 20120403
  Serious: No
  Sender: FDA-Public Use
  Company Number: 246504USA

PATIENT
  Sex: Female

DRUGS (1)
  1. MEDROXYPROGESTERONE ACETATE [Suspect]

REACTIONS (12)
  - MOOD SWINGS [None]
  - BREAST PAIN [None]
  - BREAST ENGORGEMENT [None]
  - WEIGHT INCREASED [None]
  - VAGINAL HAEMORRHAGE [None]
  - MUSCLE SPASMS [None]
  - CRYING [None]
  - NAUSEA [None]
  - BREAST SWELLING [None]
  - ALOPECIA [None]
  - INSOMNIA [None]
  - EMOTIONAL DISORDER [None]
